FAERS Safety Report 4929453-7 (Version None)
Quarter: 2006Q1

REPORT INFORMATION
  Report Type: 
  Country: None (occurrence: None)
  Receive Date: 20060224
  Receipt Date: 20060213
  Transmission Date: 20060701
  Serious: Yes (Hospitalization)
  Sender: FDA-Public Use
  Company Number: 2006021974

PATIENT
  Age: 80 Year
  Sex: Female

DRUGS (6)
  1. TAHOR (ATORVASTATIN) [Suspect]
     Indication: HYPERCHOLESTEROLAEMIA
     Dosage: (1 IN 1 D), ORAL
     Route: 048
  2. FLUINDIONE (FLUINDIONE) [Suspect]
     Indication: ILL-DEFINED DISORDER
     Dosage: (20 MG), ORAL
     Route: 048
     Dates: start: 20050727, end: 20051014
  3. TRIMETAZIDINE DIHYDROCHLORIDE (TRIMETAZIDINE HYDROCHLORIDE) [Concomitant]
  4. MORPHINE SULFATE [Concomitant]
  5. ATENOLOL [Concomitant]
  6. AMLODIPINE [Concomitant]

REACTIONS (9)
  - BLOOD PRESSURE DIASTOLIC DECREASED [None]
  - COLONIC POLYP [None]
  - DIVERTICULUM [None]
  - DIVERTICULUM INTESTINAL [None]
  - DRUG INTERACTION [None]
  - HAEMOGLOBIN DECREASED [None]
  - HAEMORRHOIDS [None]
  - INTERNATIONAL NORMALISED RATIO INCREASED [None]
  - PROTHROMBIN LEVEL INCREASED [None]
